FAERS Safety Report 8054835-7 (Version None)
Quarter: 2012Q1

REPORT INFORMATION
  Report Type: 
  Country: None (occurrence: None)
  Receive Date: 20120119
  Receipt Date: 20120113
  Transmission Date: 20120608
  Serious: Yes (Other)
  Sender: FDA-Public Use
  Company Number: IN-US-EMD SERONO, INC.-7106868

PATIENT
  Age: 12 Year
  Sex: Male

DRUGS (3)
  1. RECOMBINANT HUMAN GROWTH HORMONE (RHGH) [Suspect]
     Indication: HYPOPHOSPHATAEMIC RICKETS
     Route: 058
  2. ORAL PHOSPHATE [Concomitant]
     Indication: HYPOPHOSPHATAEMIC RICKETS
     Route: 048
  3. CALCITRIOL [Concomitant]
     Indication: HYPOPHOSPHATAEMIC RICKETS

REACTIONS (2)
  - BODY HEIGHT ABNORMAL [None]
  - LIMB DEFORMITY [None]
